FAERS Safety Report 17376420 (Version 1)
Quarter: 2020Q1

REPORT INFORMATION
  Report Type: Spontaneous
  Country: CA (occurrence: CA)
  Receive Date: 20200206
  Receipt Date: 20200206
  Transmission Date: 20200409
  Serious: Yes (Other)
  Sender: FDA-Public Use
  Company Number: CA-MYLANLABS-2020M1013863

PATIENT
  Sex: Female
  Weight: 72.56 kg

DRUGS (1)
  1. NABILONE [Suspect]
     Active Substance: NABILONE
     Indication: FIBROMYALGIA
     Dosage: 4 DOSAGE FORM, QD

REACTIONS (3)
  - Breast enlargement [Not Recovered/Not Resolved]
  - Product use in unapproved indication [Unknown]
  - Nausea [Not Recovered/Not Resolved]
